FAERS Safety Report 8539582-7 (Version None)
Quarter: 2012Q3

REPORT INFORMATION
  Report Type: 
  Country: None (occurrence: None)
  Receive Date: 20120726
  Receipt Date: 20120713
  Transmission Date: 20120928
  Serious: Yes (Life-Threatening, Hospitalization, Other)
  Sender: FDA-Public Use
  Company Number: FR-ELI_LILLY_AND_COMPANY-FR201207004165

PATIENT
  Sex: Male

DRUGS (3)
  1. CELLCEPT [Concomitant]
     Indication: HEART TRANSPLANT
     Dosage: 1 G, BID
     Dates: end: 20120522
  2. ZYPREXA [Suspect]
     Indication: PSYCHOTIC DISORDER
     Dosage: 5 MG, QD
     Route: 048
     Dates: start: 20120215, end: 20120521
  3. PERINDOPRIL ERBUMINE [Concomitant]
     Indication: HYPERTENSION
     Dosage: 2.5 MG, QD
     Dates: end: 20120522

REACTIONS (4)
  - AGRANULOCYTOSIS [None]
  - PERICARDIAL EFFUSION [None]
  - TRANSPLANT REJECTION [None]
  - TOXICITY TO VARIOUS AGENTS [None]
